FAERS Safety Report 21812083 (Version 2)
Quarter: 2023Q1

REPORT INFORMATION
  Report Type: Report from Study
  Country: US (occurrence: US)
  Receive Date: 20230103
  Receipt Date: 20230112
  Transmission Date: 20230418
  Serious: No
  Sender: FDA-Public Use
  Company Number: US-LUNDBECK-DKLU3055857

PATIENT
  Age: 52 Year
  Sex: Male

DRUGS (1)
  1. VYEPTI [Suspect]
     Active Substance: EPTINEZUMAB-JJMR
     Indication: Migraine
     Route: 041
     Dates: start: 20221128

REACTIONS (4)
  - Sinus disorder [Unknown]
  - Cough [Unknown]
  - Migraine [Unknown]
  - Drug ineffective [Unknown]
